FAERS Safety Report 10456034 (Version 1)
Quarter: 2014Q3

REPORT INFORMATION
  Report Type: Spontaneous
  Country: US (occurrence: None)
  Receive Date: 20140912
  Receipt Date: 20140912
  Transmission Date: 20150326
  Serious: Yes (Hospitalization)
  Sender: FDA-Public Use
  Company Number: US-H14001-14-00510

PATIENT
  Age: 77 Year
  Sex: Male

DRUGS (2)
  1. DRONEDARONE (DRONEDARONE) (UNKNOWN) (DRONEDARONE) [Suspect]
     Active Substance: DRONEDARONE
     Indication: PRODUCT USED FOR UNKNOWN INDICATION
  2. DIGOXIN (DIGOXIN) (UNKNOWN) (DIGOXIN) [Suspect]
     Active Substance: DIGOXIN
     Indication: ATRIAL FIBRILLATION

REACTIONS (3)
  - Toxicity to various agents [None]
  - Decreased appetite [None]
  - Drug interaction [None]
